FAERS Safety Report 23595336 (Version 2)
Quarter: 2024Q2

REPORT INFORMATION
  Report Type: Report from Study
  Country: FR (occurrence: FR)
  Receive Date: 20240305
  Receipt Date: 20240402
  Transmission Date: 20240716
  Serious: Yes (Hospitalization, Other)
  Sender: FDA-Public Use
  Company Number: FR-ASTELLAS-2024US006487

PATIENT
  Age: 75 Year
  Sex: Male

DRUGS (6)
  1. ENFORTUMAB VEDOTIN-EJFV [Suspect]
     Active Substance: ENFORTUMAB VEDOTIN-EJFV
     Indication: Transitional cell carcinoma
     Dosage: 100 MG, CYCLIC (CYCLE 1 DAY 1)
     Route: 042
     Dates: start: 20231218
  2. ENFORTUMAB VEDOTIN-EJFV [Suspect]
     Active Substance: ENFORTUMAB VEDOTIN-EJFV
     Dosage: 100 MG, CYCLIC (CYCLE 1 DAY 8)
     Route: 042
  3. ENFORTUMAB VEDOTIN-EJFV [Suspect]
     Active Substance: ENFORTUMAB VEDOTIN-EJFV
     Dosage: 100 MG, CYCLIC (CYCLE 1 DAY 15)
     Route: 042
  4. ENFORTUMAB VEDOTIN-EJFV [Suspect]
     Active Substance: ENFORTUMAB VEDOTIN-EJFV
     Dosage: 100 MG, CYCLIC (CYCLE 2 DAY 1)
     Route: 042
  5. ENFORTUMAB VEDOTIN-EJFV [Suspect]
     Active Substance: ENFORTUMAB VEDOTIN-EJFV
     Dosage: 100 MG, CYCLIC (CYCLE 2 DAY 8)
     Route: 042
  6. ENFORTUMAB VEDOTIN-EJFV [Suspect]
     Active Substance: ENFORTUMAB VEDOTIN-EJFV
     Dosage: 100 MG, CYCLIC (CYCLE 2 DAY 15)
     Route: 042
     Dates: start: 20240205, end: 20240205

REACTIONS (6)
  - Genital lesion [Recovered/Resolved]
  - Skin exfoliation [Recovering/Resolving]
  - Blister [Recovered/Resolved]
  - Febrile neutropenia [Recovered/Resolved]
  - Skin toxicity [Recovering/Resolving]
  - Pruritus [Recovering/Resolving]

NARRATIVE: CASE EVENT DATE: 20240207
